FAERS Safety Report 21298870 (Version 1)
Quarter: 2022Q3

REPORT INFORMATION
  Report Type: Spontaneous
  Country: US (occurrence: US)
  Receive Date: 20220906
  Receipt Date: 20220906
  Transmission Date: 20221027
  Serious: No
  Sender: FDA-Public Use
  Company Number: US-NOVARTISTESTPH-NVSC2022US198062

PATIENT
  Sex: Female

DRUGS (1)
  1. XIIDRA [Suspect]
     Active Substance: LIFITEGRAST
     Indication: Product used for unknown indication
     Dosage: 1 DRP (2X DAY) (1DRP/EYE)
     Route: 065
     Dates: start: 20220831

REACTIONS (3)
  - Ill-defined disorder [Unknown]
  - Vision blurred [Unknown]
  - Dry eye [Unknown]
